FAERS Safety Report 10573391 (Version 1)
Quarter: 2014Q4

REPORT INFORMATION
  Report Type: Spontaneous
  Country: US (occurrence: None)
  Receive Date: 20141030
  Receipt Date: 20141030
  Transmission Date: 20150529
  Serious: Yes (Other)
  Sender: FDA-Public Use
  Company Number: PHEH2014US010014

PATIENT
  Age: 38 Year
  Sex: Female

DRUGS (1)
  1. VIVELLE DOT [Suspect]
     Active Substance: ESTRADIOL
     Route: 062
     Dates: start: 2002

REACTIONS (3)
  - Wrong technique in drug usage process [None]
  - Product adhesion issue [None]
  - Breast cancer [None]

NARRATIVE: CASE EVENT DATE: 2007
